FAERS Safety Report 10191801 (Version 1)
Quarter: 2014Q2

REPORT INFORMATION
  Report Type: Report from Study
  Country: US (occurrence: US)
  Receive Date: 20140523
  Receipt Date: 20140523
  Transmission Date: 20141212
  Serious: Yes (Hospitalization)
  Sender: FDA-Public Use
  Company Number: US-ASTRAZENECA-2014SE34465

PATIENT
  Age: 59 Year
  Sex: Male
  Weight: 104.3 kg

DRUGS (11)
  1. ATACAND [Suspect]
     Indication: HYPERTENSION
     Route: 048
     Dates: start: 201002, end: 2010
  2. ATACAND [Suspect]
     Indication: HYPERTENSION
     Route: 048
     Dates: start: 2010
  3. ATACAND [Suspect]
     Indication: HYPERTENSION
     Dosage: CUTS HIS 32MG TABLETS IN HALF TO GET 16MG
     Route: 048
  4. LISINOPRIL [Suspect]
     Indication: BLOOD PRESSURE ABNORMAL
     Route: 048
  5. METOPROLOL TARTRATE [Suspect]
     Indication: BLOOD PRESSURE ABNORMAL
     Route: 048
     Dates: start: 2004
  6. POTASSIUM [Suspect]
     Route: 065
  7. SULFA [Suspect]
     Dosage: UNKNOWN UNK
     Route: 065
  8. AMLODIPINE [Concomitant]
     Indication: BLOOD PRESSURE ABNORMAL
     Route: 048
     Dates: start: 2011
  9. LEVOTHYROXINE [Concomitant]
     Indication: HYPOTHYROIDISM
     Route: 048
  10. LEVOTHYROXINE [Concomitant]
     Indication: HYPOTHYROIDISM
     Dosage: 4-5 YEARS AGO
     Route: 048
  11. RANITIDINE [Concomitant]
     Indication: ABDOMINAL DISCOMFORT
     Route: 048
     Dates: start: 201404

REACTIONS (11)
  - Wound infection bacterial [Recovered/Resolved]
  - Blood pressure inadequately controlled [Recovered/Resolved]
  - Adverse drug reaction [Not Recovered/Not Resolved]
  - Drug hypersensitivity [Not Recovered/Not Resolved]
  - Renin decreased [Unknown]
  - Blood potassium decreased [Not Recovered/Not Resolved]
  - Epigastric discomfort [Unknown]
  - Seasonal allergy [Unknown]
  - Malaise [Unknown]
  - Abdominal discomfort [Unknown]
  - Drug ineffective [Unknown]
